FAERS Safety Report 9968700 (Version 1)
Quarter: 2014Q1

REPORT INFORMATION
  Report Type: Report from Study
  Country: US (occurrence: US)
  Receive Date: 20140306
  Receipt Date: 20140306
  Transmission Date: 20141002
  Serious: No
  Sender: FDA-Public Use
  Company Number: US-ABBVIE-13P-163-1140995-00

PATIENT
  Age: 72 Year
  Sex: Female

DRUGS (7)
  1. HUMIRA [Suspect]
     Indication: RHEUMATOID ARTHRITIS
  2. HUMIRA [Suspect]
  3. VERAPAMIL [Concomitant]
     Indication: HYPERTENSION
     Dosage: 1 TAB DAILY
  4. ASPIRIN [Concomitant]
     Indication: PRODUCT USED FOR UNKNOWN INDICATION
     Dosage: 1/2 TAB DAILY
  5. HYDROCHLOROTHIAZIDE [Concomitant]
     Indication: BLOOD PRESSURE
     Dates: start: 2012
  6. IRBESARTAN [Concomitant]
     Indication: BLOOD PRESSURE
     Dates: start: 2012
  7. PRESERVISION [Concomitant]
     Indication: PROPHYLAXIS

REACTIONS (7)
  - Vitamin D deficiency [Not Recovered/Not Resolved]
  - Drug ineffective [Recovered/Resolved]
  - Ulcer [Not Recovered/Not Resolved]
  - Erythema [Recovering/Resolving]
  - Joint swelling [Recovering/Resolving]
  - Arthritis [Not Recovered/Not Resolved]
  - Herpes zoster [Not Recovered/Not Resolved]
